FAERS Safety Report 13260242 (Version 1)
Quarter: 2017Q1

REPORT INFORMATION
  Report Type: Spontaneous
  Country: US (occurrence: US)
  Receive Date: 20170222
  Receipt Date: 20170222
  Transmission Date: 20170428
  Serious: Yes (Hospitalization)
  Sender: FDA-Public Use
  Company Number: None

PATIENT
  Age: 56 Year
  Sex: Female
  Weight: 57.61 kg

DRUGS (4)
  1. CHEMORADIATION 5-FU [Suspect]
     Active Substance: FLUOROURACIL SODIUM
     Indication: PANCREATIC CARCINOMA
     Dosage: 5DAY/WEEK EXTERNAL BEAM IV PUMP
     Dates: start: 20160607, end: 20160715
  2. NAB-PACLITAXEL [Suspect]
     Active Substance: PACLITAXEL
     Indication: PANCREATIC CARCINOMA
     Dosage: 28 DAY CYCLE IV
     Dates: start: 20160330, end: 20160511
  3. GEMCITABINE [Suspect]
     Active Substance: GEMCITABINE\GEMCITABINE HYDROCHLORIDE
     Indication: PANCREATIC CARCINOMA
     Dosage: 28DAYCYCLE IV
     Route: 042
     Dates: start: 20160330, end: 20160511
  4. 5-FU [Suspect]
     Active Substance: FLUOROURACIL
     Indication: PANCREATIC CARCINOMA
     Dates: start: 20160607, end: 20160715

REACTIONS (5)
  - Haemorrhage [None]
  - Ascites [None]
  - Anaemia [None]
  - Rectal haemorrhage [None]
  - Enteritis [None]

NARRATIVE: CASE EVENT DATE: 20161221
